FAERS Safety Report 18585870 (Version 1)
Quarter: 2020Q4

REPORT INFORMATION
  Report Type: Spontaneous
  Country: US (occurrence: US)
  Receive Date: 20201207
  Receipt Date: 20201207
  Transmission Date: 20210114
  Serious: Yes (Other)
  Sender: FDA-Public Use
  Company Number: US-TEVA-2020-US-1855229

PATIENT
  Age: 97 Year
  Sex: Female
  Weight: 68.49 kg

DRUGS (2)
  1. QVAR REDIHALER [Suspect]
     Active Substance: BECLOMETHASONE DIPROPIONATE
     Indication: ASTHMA
  2. QVAR REDIHALER [Suspect]
     Active Substance: BECLOMETHASONE DIPROPIONATE
     Indication: DYSPNOEA
     Dosage: DOSE: 2 PUFFS TWICE A DAY, START DATE: 10 YEARS AGO
     Route: 065

REACTIONS (2)
  - Macular degeneration [Unknown]
  - Glaucoma [Unknown]
